FAERS Safety Report 6025749-9 (Version None)
Quarter: 2008Q4

REPORT INFORMATION
  Report Type: 
  Country: None (occurrence: None)
  Receive Date: 20081224
  Receipt Date: 20081215
  Transmission Date: 20090506
  Serious: No
  Sender: FDA-Public Use
  Company Number: 2008-04676

PATIENT
  Age: 78 Year
  Sex: Female

DRUGS (6)
  1. VELCADE [Suspect]
     Indication: DRUG USE FOR UNKNOWN INDICATION
  2. REVLIMID [Suspect]
     Indication: MULTIPLE MYELOMA
     Dosage: 25 MG, ORAL; 15 MG, ORAL; 10 MG, ORAL; 5 MG, ORAL
     Route: 048
     Dates: start: 20071101, end: 20071203
  3. REVLIMID [Suspect]
     Indication: MULTIPLE MYELOMA
     Dosage: 25 MG, ORAL; 15 MG, ORAL; 10 MG, ORAL; 5 MG, ORAL
     Route: 048
     Dates: start: 20070502
  4. REVLIMID [Suspect]
     Indication: MULTIPLE MYELOMA
     Dosage: 25 MG, ORAL; 15 MG, ORAL; 10 MG, ORAL; 5 MG, ORAL
     Route: 048
     Dates: start: 20070601
  5. REVLIMID [Suspect]
     Indication: MULTIPLE MYELOMA
     Dosage: 25 MG, ORAL; 15 MG, ORAL; 10 MG, ORAL; 5 MG, ORAL
     Route: 048
     Dates: start: 20070801
  6. BLOOD TRANSFUSIONS [Concomitant]

REACTIONS (2)
  - BLOOD COUNT ABNORMAL [None]
  - JAW DISORDER [None]
